FAERS Safety Report 7491744-6 (Version None)
Quarter: 2011Q2

REPORT INFORMATION
  Report Type: 
  Country: None (occurrence: None)
  Receive Date: 20110512
  Receipt Date: 20110427
  Transmission Date: 20111010
  Serious: Yes (Hospitalization)
  Sender: FDA-Public Use
  Company Number: 029341

PATIENT
  Sex: Male

DRUGS (17)
  1. PANTOPRAZOLE [Concomitant]
  2. LEXAPRO [Concomitant]
  3. QUESTRAN [Concomitant]
  4. LOPERAMIDE HCL [Concomitant]
  5. GABAPENTIN [Concomitant]
  6. CIMZIA [Suspect]
     Indication: CROHN'S DISEASE
     Dosage: (FORM : LYO SUBCUTANEOUS)
     Route: 058
     Dates: start: 20090609
  7. FOLIC ACID [Concomitant]
  8. CALCITROL /00508501/ [Concomitant]
  9. FERROUS SULFATE TAB [Concomitant]
  10. CARBAMAZEPINE [Concomitant]
  11. ALGIN /00633501/ [Concomitant]
  12. CHOLESTYRAMINE [Concomitant]
  13. SIMVASTATIN [Concomitant]
  14. PENTASA [Concomitant]
  15. LEVOTHYROXINE SODIUM [Concomitant]
  16. AMITRIPTYLINE HCL [Concomitant]
  17. TYLENOL (CAPLET) [Concomitant]

REACTIONS (10)
  - ANAEMIA [None]
  - BLOOD CULTURE POSITIVE [None]
  - CHILLS [None]
  - DIZZINESS [None]
  - ENTEROCUTANEOUS FISTULA [None]
  - BACTERIAL INFECTION [None]
  - GASTROINTESTINAL HAEMORRHAGE [None]
  - PYREXIA [None]
  - DEVICE RELATED INFECTION [None]
  - DEHYDRATION [None]
